FAERS Safety Report 9158129 (Version 5)
Quarter: 2013Q4

REPORT INFORMATION
  Report Type: Spontaneous
  Country: DE (occurrence: DE)
  Receive Date: 20130312
  Receipt Date: 20131120
  Transmission Date: 20140711
  Serious: Yes (Other)
  Sender: FDA-Public Use
  Company Number: DE-GLAXOSMITHKLINE-D0079071A

PATIENT
  Age: 47 Year
  Sex: Male

DRUGS (2)
  1. REQUIP-MODUTAB [Suspect]
     Indication: PARKINSON^S DISEASE
     Route: 048
  2. MADOPAR [Concomitant]
     Indication: PARKINSON^S DISEASE
     Dosage: 187.5MG PER DAY
     Route: 048

REACTIONS (20)
  - Disability [Unknown]
  - Tremor [Unknown]
  - Agitation [Unknown]
  - Back pain [Unknown]
  - Insomnia [Unknown]
  - Stress [Unknown]
  - Tremor [Unknown]
  - Weight decreased [Unknown]
  - Stress [Unknown]
  - Somnolence [Unknown]
  - Road traffic accident [Recovered/Resolved]
  - Emotional distress [Not Recovered/Not Resolved]
  - Sudden onset of sleep [Unknown]
  - Depressed mood [Recovered/Resolved]
  - Frustration [Recovered/Resolved]
  - Feelings of worthlessness [Recovered/Resolved]
  - Fear [Recovered/Resolved]
  - Fatigue [Recovering/Resolving]
  - Impaired driving ability [Unknown]
  - Mood swings [Unknown]
